FAERS Safety Report 6391855-2 (Version None)
Quarter: 2009Q4

REPORT INFORMATION
  Report Type: 
  Country: None (occurrence: None)
  Receive Date: 20091007
  Receipt Date: 20091006
  Transmission Date: 20100525
  Serious: Yes (Other)
  Sender: FDA-Public Use
  Company Number: US-JNJFOC-20091000610

PATIENT
  Sex: Male

DRUGS (2)
  1. TYLENOL (CAPLET) [Suspect]
     Route: 048
     Dates: start: 20090919, end: 20090923
  2. TYLENOL (CAPLET) [Suspect]
     Indication: OROPHARYNGEAL PAIN
     Route: 048
     Dates: start: 20090919, end: 20090923

REACTIONS (4)
  - DIARRHOEA [None]
  - PRODUCT QUALITY ISSUE [None]
  - PYREXIA [None]
  - TRANSMISSION OF AN INFECTIOUS AGENT VIA A MEDICINAL PRODUCT [None]
